FAERS Safety Report 21250094 (Version 1)
Quarter: 2022Q3

REPORT INFORMATION
  Report Type: Spontaneous
  Country: GB (occurrence: GB)
  Receive Date: 20220824
  Receipt Date: 20220824
  Transmission Date: 20221027
  Serious: Yes (Other)
  Sender: FDA-Public Use
  Company Number: GB-MYLANLABS-2022M1088875

PATIENT
  Age: 44 Year
  Sex: Female

DRUGS (3)
  1. NAPROXEN [Suspect]
     Active Substance: NAPROXEN
     Indication: Arthritis reactive
     Dosage: 500 MILLIGRAM, BID
     Route: 065
     Dates: start: 2021
  2. PREDNISOLONE [Concomitant]
     Active Substance: PREDNISOLONE
     Indication: Arthritis reactive
     Dosage: 15 MILLIGRAM, QD
     Route: 065
     Dates: start: 2021
  3. AZD 1222 [Concomitant]
     Indication: Immunisation
     Dosage: UNK
     Route: 065
     Dates: start: 202103

REACTIONS (1)
  - Drug ineffective [Unknown]

NARRATIVE: CASE EVENT DATE: 20210101
